FAERS Safety Report 7952577-7 (Version None)
Quarter: 2011Q4

REPORT INFORMATION
  Report Type: 
  Country: None (occurrence: None)
  Receive Date: 20111201
  Receipt Date: 20111123
  Transmission Date: 20120403
  Serious: Yes (Hospitalization)
  Sender: FDA-Public Use
  Company Number: DE-CEPHALON-2011005976

PATIENT
  Sex: Female
  Weight: 75 kg

DRUGS (7)
  1. LEVOTHYROXINE SODIUM [Concomitant]
  2. METOCLOPRAMIDE [Concomitant]
     Dates: start: 20110606, end: 20110612
  3. MABTHERA [Suspect]
     Indication: NON-HODGKIN'S LYMPHOMA
     Dates: start: 20110505
  4. BISOPROLOL FUMARATE [Concomitant]
  5. BENDAMUSTINE HCL [Suspect]
     Indication: NON-HODGKIN'S LYMPHOMA
     Route: 042
     Dates: start: 20110506
  6. PANTOPRAZOLE [Concomitant]
  7. TORSEMIDE [Concomitant]

REACTIONS (2)
  - HYPOPHAGIA [None]
  - GENERAL PHYSICAL HEALTH DETERIORATION [None]
